FAERS Safety Report 8493732-X (Version None)
Quarter: 2012Q3

REPORT INFORMATION
  Report Type: 
  Country: None (occurrence: None)
  Receive Date: 20120706
  Receipt Date: 20120702
  Transmission Date: 20120928
  Serious: Yes (Death, Hospitalization)
  Sender: FDA-Public Use
  Company Number: PHHO2012AR009872

PATIENT
  Sex: Male
  Weight: 75 kg

DRUGS (8)
  1. ZEBETA [Concomitant]
     Indication: CONGESTIVE CARDIOMYOPATHY
     Dosage: 125 MG, QD
     Route: 048
     Dates: start: 19940101, end: 20120626
  2. ENALAPRIL MALEATE [Suspect]
     Indication: CARDIAC FAILURE CHRONIC
     Dosage: DOUBLE BLINDED
     Route: 048
     Dates: start: 20100917, end: 20120626
  3. ACETYLSALICYLIC ACID SRT [Suspect]
     Indication: CARDIOVASCULAR EVENT PROPHYLAXIS
     Dosage: 100 MG, QD
     Route: 048
     Dates: start: 19930101, end: 20120626
  4. LASIX [Concomitant]
     Indication: CONGESTIVE CARDIOMYOPATHY
     Dosage: 40 MG, QD
     Route: 048
     Dates: start: 20070701, end: 20120626
  5. SPIRONOLACTONE [Concomitant]
     Indication: CONGESTIVE CARDIOMYOPATHY
     Dosage: 25 MG, QD
     Route: 048
     Dates: start: 20070701, end: 20120626
  6. ALLOPURINOL [Concomitant]
     Indication: HYPERURICAEMIA
     Dosage: 100 MG, QD
     Route: 048
     Dates: start: 20120120, end: 20120626
  7. VALSARTAN [Suspect]
     Indication: CARDIAC FAILURE CHRONIC
     Dosage: DOUBLE BLINDED
     Route: 048
     Dates: start: 20100917, end: 20120626
  8. BLINDED NO TREATMENT RECEIVED [Suspect]
     Indication: CARDIAC FAILURE CHRONIC
     Dosage: DOUBLE BLINDED
     Route: 048
     Dates: start: 20100917, end: 20120626

REACTIONS (1)
  - GASTROINTESTINAL HAEMORRHAGE [None]
